FAERS Safety Report 26124161 (Version 1)
Quarter: 2025Q4

REPORT INFORMATION
  Report Type: Spontaneous
  Country: US (occurrence: US)
  Receive Date: 20251205
  Receipt Date: 20251205
  Transmission Date: 20260117
  Serious: No
  Sender: ROCHE
  Company Number: US-ROCHE-10000449376

PATIENT

DRUGS (1)
  1. ITOVEBI [Suspect]
     Active Substance: INAVOLISIB
     Indication: HER2 positive breast cancer
     Route: 065

REACTIONS (2)
  - Diarrhoea [Unknown]
  - Blood glucose increased [Unknown]
